FAERS Safety Report 25224439 (Version 1)
Quarter: 2025Q2

REPORT INFORMATION
  Report Type: Spontaneous
  Country: US (occurrence: US)
  Receive Date: 20250422
  Receipt Date: 20250422
  Transmission Date: 20250716
  Serious: No
  Sender: JOHNSON AND JOHNSON
  Company Number: US-JNJFOC-20250415163

PATIENT
  Age: 68 Year
  Sex: Male

DRUGS (3)
  1. ERLEADA [Suspect]
     Active Substance: APALUTAMIDE
     Indication: Prostate cancer
     Route: 048
     Dates: start: 20250223
  2. RELUGOLIX [Suspect]
     Active Substance: RELUGOLIX
     Route: 048
     Dates: start: 20250223, end: 20250223
  3. RELUGOLIX [Suspect]
     Active Substance: RELUGOLIX
     Route: 048
     Dates: start: 20250224

REACTIONS (2)
  - Limb discomfort [Unknown]
  - Incorrect dose administered [Unknown]
